FAERS Safety Report 7432171-7 (Version None)
Quarter: 2011Q2

REPORT INFORMATION
  Report Type: 
  Country: None (occurrence: None)
  Receive Date: 20110422
  Receipt Date: 20110419
  Transmission Date: 20111010
  Serious: Yes (Other)
  Sender: FDA-Public Use
  Company Number: US-JNJFOC-20100510994

PATIENT
  Age: 4 Year
  Sex: Female
  Weight: 14.52 kg

DRUGS (7)
  1. CHILDREN'S MOTRIN [Suspect]
     Indication: PYREXIA
     Route: 048
  2. CHILDREN'S MOTRIN [Suspect]
     Indication: GASTROENTERITIS VIRAL
     Route: 048
  3. CHILDREN'S BENADRYL ALLERGY [Suspect]
     Indication: PRODUCT USED FOR UNKNOWN INDICATION
     Route: 048
  4. CHILDREN'S TYLENOL SUSPENSION [Suspect]
     Indication: GASTROENTERITIS VIRAL
     Route: 048
  5. CHILDREN'S TYLENOL SUSPENSION [Suspect]
     Route: 048
  6. CHILDREN'S TYLENOL SUSPENSION [Suspect]
     Indication: PYREXIA
     Route: 048
  7. CHILDREN'S TYLENOL SUSPENSION [Suspect]
     Indication: ILL-DEFINED DISORDER
     Route: 048

REACTIONS (7)
  - PRODUCT QUALITY ISSUE [None]
  - FEELING ABNORMAL [None]
  - ABDOMINAL PAIN UPPER [None]
  - NAUSEA [None]
  - WRONG DRUG ADMINISTERED [None]
  - PEPTIC ULCER [None]
  - URTICARIA [None]
